FAERS Safety Report 18714174 (Version 1)
Quarter: 2021Q1

REPORT INFORMATION
  Report Type: Spontaneous
  Country: US (occurrence: US)
  Receive Date: 20210107
  Receipt Date: 20210107
  Transmission Date: 20210419
  Serious: Yes (Death)
  Sender: FDA-Public Use
  Company Number: US-PFIZER INC-2021003470

PATIENT
  Age: 61 Year
  Sex: Female
  Weight: 72.57 kg

DRUGS (2)
  1. MEKTOVI [Suspect]
     Active Substance: BINIMETINIB
     Indication: BRAIN CANCER METASTATIC
     Dosage: UNK
  2. BRAFTOVI [Suspect]
     Active Substance: ENCORAFENIB
     Indication: BRAIN CANCER METASTATIC
     Dosage: UNK 2X/DAY (TWO 750MG TABLETS IN THE MORNING BY MOUTH AND TWO 750MG TABLETS AT NIGHT BY MOUTH)
     Route: 048

REACTIONS (2)
  - Off label use [Unknown]
  - Neoplasm progression [Fatal]
